FAERS Safety Report 8362070-8 (Version None)
Quarter: 2012Q2

REPORT INFORMATION
  Report Type: 
  Country: None (occurrence: None)
  Receive Date: 20120515
  Receipt Date: 20120504
  Transmission Date: 20120825
  Serious: Yes (Hospitalization)
  Sender: FDA-Public Use
  Company Number: DE-ROCHE-1065999

PATIENT
  Age: 44 Year
  Sex: Male
  Weight: 130 kg

DRUGS (4)
  1. PREDNISOLONE [Suspect]
     Indication: RHEUMATOID ARTHRITIS
     Route: 048
  2. CANDESARTAN CILEXETIL [Concomitant]
     Indication: HYPERTENSION
     Dosage: LAST DOSE PRIOR TO SAE: 01 MAY 2012
     Route: 048
     Dates: start: 20120201
  3. ACTEMRA [Suspect]
     Indication: RHEUMATOID ARTHRITIS
     Dosage: LAST DOSE PRIOR TO SAE: 24/APR/2012
     Route: 042
     Dates: start: 20120327
  4. PANTOPRAZOLE [Concomitant]
     Indication: GASTRITIS
     Route: 048
     Dates: start: 20120201

REACTIONS (2)
  - PANCREATITIS [None]
  - HERPES ZOSTER [None]
